FAERS Safety Report 10159893 (Version 3)
Quarter: 2014Q2

REPORT INFORMATION
  Report Type: Spontaneous
  Country: JP (occurrence: JP)
  Receive Date: 20140508
  Receipt Date: 20140526
  Transmission Date: 20141212
  Serious: Yes (Hospitalization, Other)
  Sender: FDA-Public Use
  Company Number: JP-ASTRAZENECA-2014SE28269

PATIENT
  Age: 64 Year
  Sex: Male

DRUGS (4)
  1. NEXIUM [Suspect]
     Route: 065
  2. DEPAKENE [Suspect]
     Route: 065
     Dates: start: 20140423, end: 20140425
  3. LIVALO [Suspect]
     Route: 065
     Dates: end: 20140414
  4. MEROPEN [Concomitant]
     Route: 065
     Dates: start: 20140423, end: 20140425

REACTIONS (6)
  - Blood creatine phosphokinase increased [Unknown]
  - Brain contusion [Unknown]
  - Fall [Unknown]
  - Altered state of consciousness [Unknown]
  - Dehydration [Unknown]
  - Convulsion [Unknown]
